FAERS Safety Report 24543949 (Version 1)
Quarter: 2024Q4

REPORT INFORMATION
  Report Type: Spontaneous
  Country: ES (occurrence: ES)
  Receive Date: 20241024
  Receipt Date: 20241024
  Transmission Date: 20250115
  Serious: Yes (Life-Threatening, Other)
  Sender: AUROBINDO
  Company Number: ES-MLMSERVICE-20241002-PI214569-00327-1

PATIENT
  Age: 46 Year

DRUGS (1)
  1. VALPROIC ACID [Suspect]
     Active Substance: VALPROIC ACID
     Indication: Borderline personality disorder
     Dosage: UNK
     Route: 065

REACTIONS (1)
  - Hyperammonaemic encephalopathy [Unknown]
